FAERS Safety Report 6676867-3 (Version None)
Quarter: 2010Q2

REPORT INFORMATION
  Report Type: 
  Country: None (occurrence: None)
  Receive Date: 20100412
  Receipt Date: 20100331
  Transmission Date: 20101027
  Serious: Yes (Hospitalization)
  Sender: FDA-Public Use
  Company Number: DE-ROCHE-696097

PATIENT
  Sex: Male
  Weight: 85 kg

DRUGS (2)
  1. PEGINTERFERON ALFA-2A [Suspect]
     Route: 058
     Dates: start: 20080511, end: 20090925
  2. RIBAVIRIN [Suspect]
     Route: 048
     Dates: start: 20080511, end: 20090925

REACTIONS (1)
  - ALCOHOL USE [None]
